FAERS Safety Report 4820429-7 (Version None)
Quarter: 2005Q4

REPORT INFORMATION
  Report Type: 
  Country: None (occurrence: None)
  Receive Date: 20051014
  Receipt Date: 20050901
  Transmission Date: 20060501
  Serious: No
  Sender: FDA-Public Use
  Company Number: 2005SP002673

PATIENT
  Age: 52 Year
  Sex: Female

DRUGS (1)
  1. LUNESTA [Suspect]
     Dosage: 2 MG;HS;ORAL
     Route: 048
     Dates: start: 20050531, end: 20050816

REACTIONS (4)
  - FATIGUE [None]
  - MENORRHAGIA [None]
  - MUSCLE SPASMS [None]
  - PELVIC DISCOMFORT [None]
